FAERS Safety Report 11859012 (Version 3)
Quarter: 2016Q1

REPORT INFORMATION
  Report Type: Spontaneous
  Country: US (occurrence: US)
  Receive Date: 20151222
  Receipt Date: 20160122
  Transmission Date: 20160526
  Serious: Yes (Hospitalization)
  Sender: FDA-Public Use
  Company Number: US-PFIZER INC-2015439621

PATIENT
  Age: 55 Year
  Sex: Female

DRUGS (2)
  1. IBRANCE [Suspect]
     Active Substance: PALBOCICLIB
     Indication: BREAST CANCER
     Dosage: 125 MG, CYCLIC (21 DAYS FOLLOWED BY 7 DAYS OFF)
     Route: 048
     Dates: start: 201509
  2. CAPECITABINE. [Suspect]
     Active Substance: CAPECITABINE
     Dosage: UNK

REACTIONS (8)
  - Abdominal pain upper [Recovered/Resolved]
  - Renal disorder [Unknown]
  - Nausea [Not Recovered/Not Resolved]
  - Vomiting [Not Recovered/Not Resolved]
  - Device occlusion [Unknown]
  - Jaundice [Recovered/Resolved]
  - Constipation [Recovered/Resolved]
  - Urinary tract infection [Unknown]
